FAERS Safety Report 7555827-4 (Version None)
Quarter: 2011Q2

REPORT INFORMATION
  Report Type: 
  Country: None (occurrence: None)
  Receive Date: 20110618
  Receipt Date: 20110203
  Transmission Date: 20111010
  Serious: Yes (Hospitalization, Other)
  Sender: FDA-Public Use
  Company Number: US-BAYER-201013288NA

PATIENT
  Age: 20 Year
  Sex: Female
  Weight: 91 kg

DRUGS (8)
  1. CLARITIN-D 24 HOUR [Concomitant]
  2. THYROID THERAPY [Concomitant]
  3. NARINE [Concomitant]
  4. ANTIBIOTICS [Concomitant]
  5. YAZ [Suspect]
     Indication: PRODUCT USED FOR UNKNOWN INDICATION
     Route: 048
  6. BISMUTH SUBSALICYLATE [Concomitant]
     Indication: ABDOMINAL DISCOMFORT
     Dates: start: 20090801, end: 20090815
  7. LEVOXYL [Concomitant]
  8. LEXAPRO [Concomitant]

REACTIONS (6)
  - CHOLECYSTITIS CHRONIC [None]
  - ABDOMINAL PAIN UPPER [None]
  - CHOLELITHIASIS [None]
  - BACK PAIN [None]
  - NAUSEA [None]
  - VOMITING [None]
